FAERS Safety Report 15284423 (Version 3)
Quarter: 2018Q4

REPORT INFORMATION
  Report Type: Spontaneous
  Country: IT (occurrence: IT)
  Receive Date: 20180816
  Receipt Date: 20181009
  Transmission Date: 20190204
  Serious: Yes (Life-Threatening, Hospitalization, Other)
  Sender: FDA-Public Use
  Company Number: PHHY2018IT028733

PATIENT
  Age: 75 Year
  Sex: Male

DRUGS (11)
  1. TRAMADOL. [Suspect]
     Active Substance: TRAMADOL
     Indication: FIBROMYALGIA
     Dosage: 200 MG, QD
     Route: 065
  2. GABAPENTIN. [Suspect]
     Active Substance: GABAPENTIN
     Indication: MIXED ANXIETY AND DEPRESSIVE DISORDER
  3. AMITRIPTYLINE [Suspect]
     Active Substance: AMITRIPTYLINE
     Indication: DEPRESSION
     Dosage: 50 MG, QD
     Route: 065
  4. AMITRIPTYLINE [Suspect]
     Active Substance: AMITRIPTYLINE
     Indication: MIXED ANXIETY AND DEPRESSIVE DISORDER
  5. TRAZODONE [Interacting]
     Active Substance: TRAZODONE HYDROCHLORIDE
     Indication: MIXED ANXIETY AND DEPRESSIVE DISORDER
     Dosage: 100 MG, QD
     Route: 065
  6. GABAPENTIN. [Suspect]
     Active Substance: GABAPENTIN
     Indication: DEPRESSION
  7. AMITRIPTYLINE [Suspect]
     Active Substance: AMITRIPTYLINE
     Indication: FIBROMYALGIA
  8. TRAMADOL. [Suspect]
     Active Substance: TRAMADOL
     Indication: MIXED ANXIETY AND DEPRESSIVE DISORDER
  9. GABAPENTIN. [Suspect]
     Active Substance: GABAPENTIN
     Indication: FIBROMYALGIA
     Dosage: 900 MG, UNK
     Route: 065
  10. TRAZODONE [Interacting]
     Active Substance: TRAZODONE HYDROCHLORIDE
     Indication: FIBROMYALGIA
  11. DIAZEPAM. [Concomitant]
     Active Substance: DIAZEPAM
     Indication: PRODUCT USED FOR UNKNOWN INDICATION
     Dosage: UNK
     Route: 065

REACTIONS (11)
  - C-reactive protein increased [Unknown]
  - Serotonin syndrome [Recovered/Resolved]
  - Tremor [Recovered/Resolved]
  - Pneumonia [Recovered/Resolved]
  - Stupor [Unknown]
  - Drug interaction [Recovered/Resolved]
  - Snoring [Unknown]
  - Blood creatinine increased [Unknown]
  - Neutrophil count increased [Unknown]
  - Pleural effusion [Unknown]
  - Syncope [Recovered/Resolved]
